FAERS Safety Report 15094482 (Version 1)
Quarter: 2018Q3

REPORT INFORMATION
  Report Type: Report from Study
  Country: IT (occurrence: IT)
  Receive Date: 20180630
  Receipt Date: 20180630
  Transmission Date: 20181010
  Serious: Yes (Hospitalization)
  Sender: FDA-Public Use
  Company Number: IT-TEVA-2018-IT-916845

PATIENT
  Age: 25 Year
  Sex: Female

DRUGS (2)
  1. ALPRAZOLAM. [Suspect]
     Active Substance: ALPRAZOLAM
     Route: 048
     Dates: start: 20170127, end: 20170127
  2. DEPAKIN 200 MG COMPRESSE GASTRORESISTENTI [Suspect]
     Active Substance: VALPROATE SODIUM
     Route: 048

REACTIONS (3)
  - Drug abuse [Recovering/Resolving]
  - Depressed level of consciousness [Recovering/Resolving]
  - Suicide attempt [Recovering/Resolving]

NARRATIVE: CASE EVENT DATE: 20170127
